FAERS Safety Report 4526617-1 (Version None)
Quarter: 2004Q4

REPORT INFORMATION
  Report Type: 
  Country: None (occurrence: None)
  Receive Date: 20041213
  Receipt Date: 20041206
  Transmission Date: 20050328
  Serious: Yes (Death)
  Sender: FDA-Public Use
  Company Number: 163-20785-04120179

PATIENT
  Age: 1 Year
  Sex: Male

DRUGS (1)
  1. THALOMID [Suspect]
     Indication: MALIGNANT HISTIOCYTOSIS
     Dosage: 100 MG, DAILY, ORAL
     Route: 048
     Dates: start: 20040817, end: 20040101

REACTIONS (5)
  - HEPATIC CIRRHOSIS [None]
  - HYPERSPLENISM ACQUIRED [None]
  - LANGERHANS' CELL GRANULOMATOSIS [None]
  - MALIGNANT NEOPLASM PROGRESSION [None]
  - PANCYTOPENIA [None]
